FAERS Safety Report 9358362 (Version 1)
Quarter: 2013Q2

REPORT INFORMATION
  Report Type: Spontaneous
  Country: US (occurrence: US)
  Receive Date: 20130620
  Receipt Date: 20130620
  Transmission Date: 20140414
  Serious: Yes (Hospitalization)
  Sender: FDA-Public Use
  Company Number: US-GILEAD-2013-0076924

PATIENT
  Sex: Female

DRUGS (4)
  1. LETAIRIS [Suspect]
     Indication: PRODUCT USED FOR UNKNOWN INDICATION
     Dosage: 10 MG, QD
     Route: 048
     Dates: start: 20110120
  2. VENTAVIS [Concomitant]
  3. REVATIO [Concomitant]
  4. COUMADIN                           /00014802/ [Concomitant]

REACTIONS (5)
  - Bronchitis [Recovered/Resolved]
  - Dehydration [Recovered/Resolved]
  - Pulmonary oedema [Recovered/Resolved]
  - Influenza [Unknown]
  - Dyspnoea [Unknown]
